FAERS Safety Report 24618302 (Version 2)
Quarter: 2025Q2

REPORT INFORMATION
  Report Type: Spontaneous
  Country: US (occurrence: US)
  Receive Date: 20241114
  Receipt Date: 20250604
  Transmission Date: 20250717
  Serious: Yes (Hospitalization)
  Sender: HISAMITSU PHARMACEUTICAL CO., INC.
  Company Number: US-HISAMITSU PHARMACEUTICAL CO., INC.-2024-NOV-US000607

PATIENT
  Sex: Female
  Weight: 65.76 kg

DRUGS (3)
  1. SECUADO [Suspect]
     Active Substance: ASENAPINE
     Indication: Vascular dementia
     Route: 062
     Dates: start: 2023
  2. SECUADO [Suspect]
     Active Substance: ASENAPINE
     Indication: Dementia Alzheimer^s type
  3. SECUADO [Suspect]
     Active Substance: ASENAPINE
     Indication: Off label use

REACTIONS (1)
  - Fall [Unknown]
